FAERS Safety Report 17347775 (Version 1)
Quarter: 2020Q1

REPORT INFORMATION
  Report Type: Report from Study
  Country: US (occurrence: US)
  Receive Date: 20200129
  Receipt Date: 20200129
  Transmission Date: 20200409
  Serious: No
  Sender: FDA-Public Use
  Company Number: US-EXELIXIS-CABO-19025281

PATIENT
  Age: 61 Year
  Sex: Female

DRUGS (1)
  1. CABOMETYX [Suspect]
     Active Substance: CABOZANTINIB S-MALATE
     Indication: THYROID CANCER
     Dosage: UNK
     Dates: end: 201911

REACTIONS (25)
  - Carcinoembryonic antigen increased [Unknown]
  - Feeding disorder [Unknown]
  - Menstrual disorder [Unknown]
  - Pain [Not Recovered/Not Resolved]
  - Decreased appetite [Unknown]
  - Dizziness [Unknown]
  - Nausea [Not Recovered/Not Resolved]
  - Off label use [Unknown]
  - Migraine [Unknown]
  - Ovarian cyst [Unknown]
  - Asthenia [Unknown]
  - Hypersensitivity [Unknown]
  - Factor V Leiden carrier [Unknown]
  - Decreased activity [Unknown]
  - Adrenal insufficiency [Unknown]
  - Uterine leiomyoma [Unknown]
  - Skin lesion [Unknown]
  - Weight decreased [Unknown]
  - Fatigue [Not Recovered/Not Resolved]
  - Insomnia [Unknown]
  - Impaired work ability [Unknown]
  - Vitamin D deficiency [Unknown]
  - Back pain [Not Recovered/Not Resolved]
  - Hypothyroidism [Not Recovered/Not Resolved]
  - Malignant neoplasm progression [Recovering/Resolving]

NARRATIVE: CASE EVENT DATE: 20191111
